FAERS Safety Report 4549489-8 (Version None)
Quarter: 2005Q1

REPORT INFORMATION
  Report Type: 
  Country: None (occurrence: None)
  Receive Date: 20050106
  Receipt Date: 20041227
  Transmission Date: 20050727
  Serious: Yes (Life-Threatening)
  Sender: FDA-Public Use
  Company Number: 2004AP01788

PATIENT
  Age: 74 Year
  Sex: Male

DRUGS (10)
  1. CASODEX [Suspect]
     Indication: PROSTATE CANCER
     Dosage: 80 MG DAILY PO
     Route: 048
     Dates: start: 20040303, end: 20040311
  2. BLOPRESS [Concomitant]
  3. GASTER [Concomitant]
  4. SEPAMIT [Concomitant]
  5. TAKEPRON [Concomitant]
  6. MICARDIS [Concomitant]
  7. MUCODYNE [Concomitant]
  8. GENTACIN [Concomitant]
  9. VANCOMYCIN [Concomitant]
  10. PENTCILLIN [Concomitant]

REACTIONS (8)
  - DIABETIC HYPEROSMOLAR COMA [None]
  - DISSEMINATED INTRAVASCULAR COAGULATION [None]
  - GENERAL PHYSICAL HEALTH DETERIORATION [None]
  - HYPERGLYCAEMIA [None]
  - KETOACIDOSIS [None]
  - MALIGNANT NEOPLASM PROGRESSION [None]
  - PNEUMONIA [None]
  - PROSTATE CANCER [None]
